FAERS Safety Report 9249890 (Version 1)
Quarter: 2013Q2

REPORT INFORMATION
  Report Type: Spontaneous
  Country: TR (occurrence: TR)
  Receive Date: 20130423
  Receipt Date: 20130423
  Transmission Date: 20140414
  Serious: Yes (Hospitalization)
  Sender: FDA-Public Use
  Company Number: TR-MYLANLABS-2013S1008034

PATIENT
  Sex: Female

DRUGS (8)
  1. VENLAFAXINE [Suspect]
     Indication: HEADACHE
     Dosage: 75MG/DAY FOR 3 WEEKS THEN INCREASED TO 225MG/DAY
     Route: 065
  2. VENLAFAXINE [Suspect]
     Indication: DRUG DEPENDENCE
     Dosage: 75MG/DAY FOR 3 WEEKS THEN INCREASED TO 225MG/DAY
     Route: 065
  3. VENLAFAXINE [Suspect]
     Indication: HEADACHE
     Dosage: 225MG/DAY SUBSEQUENTLY INCREASED BY PATIENT
     Route: 065
  4. VENLAFAXINE [Suspect]
     Indication: DRUG DEPENDENCE
     Dosage: 225MG/DAY SUBSEQUENTLY INCREASED BY PATIENT
     Route: 065
  5. VENLAFAXINE [Suspect]
     Indication: HEADACHE
     Dosage: 900MG/DAY SUBSEQUENTLY INCREASED BY PATIENT
     Route: 065
  6. VENLAFAXINE [Suspect]
     Indication: DRUG DEPENDENCE
     Dosage: 900MG/DAY SUBSEQUENTLY INCREASED BY PATIENT
     Route: 065
  7. VENLAFAXINE [Suspect]
     Indication: HEADACHE
     Dosage: 1050MG/DAY PRIOR TO 1ST ADMISSION
     Route: 065
  8. VENLAFAXINE [Suspect]
     Indication: DRUG DEPENDENCE
     Dosage: 1050MG/DAY PRIOR TO 1ST ADMISSION
     Route: 065

REACTIONS (10)
  - Drug dependence [Recovering/Resolving]
  - Drug withdrawal syndrome [Recovering/Resolving]
  - Intentional drug misuse [Recovered/Resolved]
  - Headache [Recovering/Resolving]
  - Insomnia [Recovering/Resolving]
  - Pain [Recovering/Resolving]
  - Fatigue [Recovering/Resolving]
  - Muscle strain [Recovering/Resolving]
  - Dizziness [Recovering/Resolving]
  - Nausea [Recovering/Resolving]
